FAERS Safety Report 18018472 (Version 1)
Quarter: 2020Q3

REPORT INFORMATION
  Report Type: Spontaneous
  Country: US (occurrence: US)
  Receive Date: 20200713
  Receipt Date: 20200713
  Transmission Date: 20201103
  Serious: Yes (Other)
  Sender: FDA-Public Use
  Company Number: None

PATIENT
  Age: 27 Year
  Sex: Female
  Weight: 75.75 kg

DRUGS (1)
  1. LEVETIRACETAM 500MG [Suspect]
     Active Substance: LEVETIRACETAM
     Indication: JUVENILE MYOCLONIC EPILEPSY
     Route: 048

REACTIONS (1)
  - Adverse reaction [None]

NARRATIVE: CASE EVENT DATE: 20200117
